FAERS Safety Report 25003385 (Version 1)
Quarter: 2025Q1

REPORT INFORMATION
  Report Type: Spontaneous
  Country: PT (occurrence: PT)
  Receive Date: 20250224
  Receipt Date: 20250224
  Transmission Date: 20250408
  Serious: Yes (Life-Threatening, Hospitalization)
  Sender: MACLEODS
  Company Number: PT-MACLEODS PHARMA-MAC2025051598

PATIENT

DRUGS (4)
  1. CELECOXIB [Suspect]
     Active Substance: CELECOXIB
     Indication: Pain
     Route: 065
  2. FLUOXETINE [Concomitant]
     Active Substance: FLUOXETINE HYDROCHLORIDE
     Indication: Product used for unknown indication
     Route: 065
  3. AMITRIPTYLINE [Concomitant]
     Active Substance: AMITRIPTYLINE
     Indication: Product used for unknown indication
     Route: 065
  4. CLOXAZOLAM [Concomitant]
     Active Substance: CLOXAZOLAM
     Indication: Product used for unknown indication
     Route: 065

REACTIONS (4)
  - Respiratory failure [Recovered/Resolved]
  - Drug reaction with eosinophilia and systemic symptoms [Recovered/Resolved]
  - Hepatitis [Recovered/Resolved]
  - Pancytopenia [Recovered/Resolved]
